FAERS Safety Report 6429522-9 (Version None)
Quarter: 2009Q4

REPORT INFORMATION
  Report Type: 
  Country: None (occurrence: None)
  Receive Date: 20091102
  Receipt Date: 20091026
  Transmission Date: 20100525
  Serious: Yes (Other)
  Sender: FDA-Public Use
  Company Number: 09US004636

PATIENT
  Age: 17 Year
  Sex: Male

DRUGS (1)
  1. IBUPROFEN [Suspect]
     Indication: DRUG USE FOR UNKNOWN INDICATION
     Dosage: 12000 MG, OVER 6 HOURS, ORAL
     Route: 048
     Dates: start: 20091026, end: 20091026

REACTIONS (1)
  - OVERDOSE [None]
